FAERS Safety Report 8202399-7 (Version None)
Quarter: 2012Q1

REPORT INFORMATION
  Report Type: 
  Country: None (occurrence: None)
  Receive Date: 20120227
  Receipt Date: 20120118
  Transmission Date: 20120608
  Serious: No
  Sender: FDA-Public Use
  Company Number: 343260

PATIENT
  Age: 55 Year
  Sex: Male

DRUGS (2)
  1. VICTOZA [Suspect]
     Indication: TYPE 2 DIABETES MELLITUS
     Dosage: 1.2 MG, QD, SUBCUTANEOUS
     Route: 058
     Dates: start: 20111001
  2. TRAMADOL HCL [Suspect]
     Indication: PAIN

REACTIONS (3)
  - ERUCTATION [None]
  - NAUSEA [None]
  - HEPATIC ENZYME ABNORMAL [None]
